FAERS Safety Report 8274519 (Version 2)
Quarter: 2013Q1

REPORT INFORMATION
  Report Type: Spontaneous
  Country: US (occurrence: None)
  Receive Date: 20111123
  Receipt Date: 20130125
  Transmission Date: 20140127
  Serious: Yes (Death, Other)
  Sender: FDA-Public Use
  Company Number: 2011SGN00293

PATIENT
  Age: 52 Year
  Sex: Male

DRUGS (4)
  1. ADCETRIS [Suspect]
     Indication: ANAPLASTIC LARGE CELL LYMPHOMA T- AND NULL-CELL TYPES
     Dosage: Q CYCLE
     Dates: start: 2011, end: 2011
  2. TACROLIMUS (TACROLIMUS) [Concomitant]
  3. SIROLIMUS (SIROLIMUS) [Concomitant]
  4. METHOTREXATE (METHOTREXATE SODIUM) [Concomitant]

REACTIONS (11)
  - Cutaneous vasculitis [None]
  - Periodontitis [None]
  - Vasculitis necrotising [None]
  - Blood bilirubin increased [None]
  - Blood lactate dehydrogenase increased [None]
  - Blood urea increased [None]
  - Alanine aminotransferase increased [None]
  - Aspartate aminotransferase increased [None]
  - White blood cell count increased [None]
  - Anaemia [None]
  - Thrombocytopenia [None]
